FAERS Safety Report 8959150 (Version 1)
Quarter: 2012Q4

REPORT INFORMATION
  Report Type: 
  Country: US (occurrence: US)
  Receive Date: 20121211
  Receipt Date: 20121211
  Transmission Date: 20130627
  Serious: Yes (Other)
  Sender: FDA-Public Use
  Company Number: US-VERTEX PHARMACEUTICAL INC.-2012-020305

PATIENT
  Age: 55 Year
  Sex: Female
  Weight: 48 kg

DRUGS (11)
  1. VX-950 (TELAPREVIR) [Suspect]
     Indication: HEPATITIS C
     Dosage: 750 mg, tid
     Route: 048
  2. RIBAVIRIN [Concomitant]
     Indication: HEPATITIS C
     Dosage: UNK UNK, qd
     Route: 048
  3. RIBAVIRIN [Concomitant]
     Dosage: 400 mg, qd
     Route: 048
  4. PEGASYS [Concomitant]
     Indication: HEPATITIS C
     Dosage: 180 UNK, UNK
  5. CENTRUM                            /00554501/ [Concomitant]
  6. LISINOPRIL [Concomitant]
  7. HYDROCHLOROTHIAZIDE [Concomitant]
  8. VITAMIN D3 [Concomitant]
     Dosage: 1000 ut, UNK
  9. TYLENOL /00020001/ [Concomitant]
     Dosage: 500 mg, UNK
  10. B COMPLEX                          /00212701/ [Concomitant]
  11. BIOTIN [Concomitant]
     Dosage: 5 mg, UNK

REACTIONS (1)
  - Anaemia [Unknown]
